FAERS Safety Report 9507167 (Version 2)
Quarter: 2013Q4

REPORT INFORMATION
  Report Type: Spontaneous
  Country: ES (occurrence: None)
  Receive Date: 20130904
  Receipt Date: 20131016
  Transmission Date: 20140711
  Serious: Yes (Death, Hospitalization)
  Sender: FDA-Public Use
  Company Number: SYM-2013-10258

PATIENT
  Age: 68 Year
  Sex: Male

DRUGS (8)
  1. 5-FU [Suspect]
     Indication: COLORECTAL CANCER
     Route: 040
     Dates: start: 20130531, end: 20130531
  2. IRINOTECAN [Suspect]
     Indication: COLORECTAL CANCER
     Route: 042
     Dates: start: 20130531, end: 20130531
  3. LEUCOVORIN (FOLINIC ACID) (SOLUTION FOR INFUSION) (FOLINIC ACID) [Suspect]
     Indication: COLORECTAL CANCER
     Route: 042
     Dates: start: 20130531, end: 20130531
  4. AFLIBERCEPT [Suspect]
     Indication: COLORECTAL CANCER
     Route: 042
     Dates: start: 20130531, end: 20130531
  5. CORTICOSTEROID NOS (CORTICOSTEROID NOS) [Concomitant]
  6. ANALGESICS (ANALGESICS) [Concomitant]
  7. OMEPRAZOLE (OMEPRAZOLE) (OMEPRAZOLE) [Concomitant]
  8. SPIRONOLACTONE (SPIRONOLACTONE) [Concomitant]

REACTIONS (2)
  - Hip fracture [None]
  - Acute pulmonary oedema [None]
